FAERS Safety Report 23762542 (Version 2)
Quarter: 2024Q2

REPORT INFORMATION
  Report Type: Spontaneous
  Country: CN (occurrence: CN)
  Receive Date: 20240419
  Receipt Date: 20240508
  Transmission Date: 20240716
  Serious: Yes (Other)
  Sender: FDA-Public Use
  Company Number: CN-ABBVIE-5721241

PATIENT
  Age: 60 Year
  Sex: Male

DRUGS (8)
  1. VENETOCLAX [Suspect]
     Active Substance: VENETOCLAX
     Indication: Acute myeloid leukaemia
     Dosage: DAY 1
     Route: 048
     Dates: start: 20220615, end: 20220704
  2. VENETOCLAX [Suspect]
     Active Substance: VENETOCLAX
     Indication: Acute myeloid leukaemia
     Dosage: DAY 2
     Route: 048
     Dates: start: 20220616, end: 20220704
  3. VENETOCLAX [Suspect]
     Active Substance: VENETOCLAX
     Indication: Acute myeloid leukaemia
     Dosage: DAY 3 TO 7
     Route: 048
     Dates: start: 20220617, end: 20220704
  4. OMACETAXINE MEPESUCCINATE [Suspect]
     Active Substance: OMACETAXINE MEPESUCCINATE
     Indication: Acute myeloid leukaemia
     Dosage: STRENGTH: 1 ML + 1 MILLIGRAM, DAY 1 TO 7
     Route: 041
     Dates: start: 20220615, end: 20220704
  5. GRANULOCYTE COLONY-STIMULATING FACTOR NOS [Suspect]
     Active Substance: GRANULOCYTE COLONY-STIMULATING FACTOR NOS
     Indication: Acute myeloid leukaemia
     Dosage: 250 MICROGRAM, DAY 1 TO 7
     Route: 042
     Dates: start: 20220615, end: 20220704
  6. DECITABINE [Suspect]
     Active Substance: DECITABINE
     Indication: Acute myeloid leukaemia
     Dosage: STRENGTH: 10 MILLIGRAM, DAYS 1 TO 3
     Route: 041
     Dates: start: 20220615, end: 20220704
  7. CYTARABINE [Suspect]
     Active Substance: CYTARABINE
     Indication: Acute myeloid leukaemia
     Dosage: 100 MILLIGRAM, DAY 1 TO 7
     Route: 042
     Dates: start: 20220615, end: 20220704
  8. IVOSIDENIB [Concomitant]
     Active Substance: IVOSIDENIB
     Indication: Acute myeloid leukaemia
     Dosage: DAYS 5 TO 21.
     Route: 048

REACTIONS (1)
  - Myelosuppression [Recovering/Resolving]

NARRATIVE: CASE EVENT DATE: 20220622
